FAERS Safety Report 8402385-8 (Version None)
Quarter: 2012Q2

REPORT INFORMATION
  Report Type: 
  Country: None (occurrence: None)
  Receive Date: 20120601
  Receipt Date: 20110720
  Transmission Date: 20120825
  Serious: No
  Sender: FDA-Public Use
  Company Number: US-NOVEN-11US002822

PATIENT
  Age: 9 Year
  Sex: Female

DRUGS (1)
  1. DAYTRANA [Suspect]
     Indication: ATTENTION DEFICIT/HYPERACTIVITY DISORDER
     Dosage: 1 PATCH QD, 9 HOURS
     Route: 062
     Dates: end: 20090101

REACTIONS (3)
  - APPLICATION SITE RASH [None]
  - BLISTER [None]
  - SKIN IRRITATION [None]
